FAERS Safety Report 17498637 (Version 5)
Quarter: 2021Q3

REPORT INFORMATION
  Report Type: Spontaneous
  Country: JP (occurrence: JP)
  Receive Date: 20200304
  Receipt Date: 20210830
  Transmission Date: 20211014
  Serious: Yes (Hospitalization, Other)
  Sender: FDA-Public Use
  Company Number: JP-BRISTOL-MYERS SQUIBB COMPANY-BMS-2018-069194

PATIENT
  Age: 73 Year
  Sex: Female

DRUGS (4)
  1. OPDIVO [Suspect]
     Active Substance: NIVOLUMAB
     Dosage: 80 MG, PER DAY
     Route: 041
     Dates: start: 20180914, end: 20181005
  2. OPDIVO [Suspect]
     Active Substance: NIVOLUMAB
     Indication: MALIGNANT MELANOMA
     Dosage: 1 MILLIGRAM/KILOGRAM
     Route: 041
     Dates: start: 20180710, end: 20180710
  3. YERVOY [Suspect]
     Active Substance: IPILIMUMAB
     Indication: MALIGNANT MELANOMA
     Dosage: 3 MILLIGRAM/KILOGRAM
     Route: 041
     Dates: start: 20180710, end: 20180710
  4. YERVOY [Suspect]
     Active Substance: IPILIMUMAB
     Dosage: 3 MILLIGRAM/KILOGRAM
     Route: 041
     Dates: start: 20180914, end: 20180914

REACTIONS (8)
  - Hypophysitis [Recovered/Resolved]
  - Meningitis aseptic [Recovered/Resolved]
  - Delirium [Recovering/Resolving]
  - Malaise [Unknown]
  - Aspartate aminotransferase increased [Unknown]
  - Pyrexia [Unknown]
  - Liver disorder [Unknown]
  - Amylase increased [Recovered/Resolved]

NARRATIVE: CASE EVENT DATE: 20180717
